FAERS Safety Report 5125007-0 (Version None)
Quarter: 2006Q4

REPORT INFORMATION
  Report Type: 
  Country: None (occurrence: None)
  Receive Date: 20061011
  Receipt Date: 20061005
  Transmission Date: 20070319
  Serious: Yes (Other)
  Sender: FDA-Public Use
  Company Number: GB-GLAXOSMITHKLINE-B0441471A

PATIENT
  Age: 28 Year
  Sex: Female
  Weight: 67 kg

DRUGS (9)
  1. AUGMENTIN [Suspect]
     Indication: ANTIBIOTIC PROPHYLAXIS
     Dosage: 1.2G PER DAY
     Route: 042
     Dates: start: 20060822, end: 20060822
  2. CEFUROXIME [Concomitant]
     Indication: CHOLECYSTITIS
     Route: 042
     Dates: start: 20060830, end: 20060908
  3. CLEXANE [Concomitant]
     Indication: PULMONARY EMBOLISM
     Route: 058
     Dates: start: 20060830, end: 20060907
  4. CODEINE PHOSPHATE [Concomitant]
     Route: 048
     Dates: start: 20060822, end: 20060908
  5. DICLOFENAC [Concomitant]
     Route: 048
     Dates: start: 20060822, end: 20060830
  6. DICLOFENAC [Concomitant]
     Route: 054
     Dates: start: 20060822, end: 20060830
  7. METRONIDAZOLE [Concomitant]
     Indication: CHOLECYSTITIS
     Route: 042
     Dates: start: 20060830, end: 20060908
  8. ACETAMINOPHEN [Concomitant]
     Route: 048
     Dates: start: 20060822, end: 20060908
  9. ACETAMINOPHEN [Concomitant]
     Route: 054
     Dates: start: 20060822, end: 20060908

REACTIONS (3)
  - ALANINE AMINOTRANSFERASE INCREASED [None]
  - BLOOD ALKALINE PHOSPHATASE INCREASED [None]
  - LIVER FUNCTION TEST ABNORMAL [None]
